FAERS Safety Report 4649455-8 (Version None)
Quarter: 2005Q2

REPORT INFORMATION
  Report Type: 
  Country: None (occurrence: None)
  Receive Date: 20050427
  Receipt Date: 20050330
  Transmission Date: 20051028
  Serious: Yes (Other)
  Sender: FDA-Public Use
  Company Number: 2005057798

PATIENT
  Age: 29 Year
  Sex: Female

DRUGS (3)
  1. CELEBREX [Suspect]
     Indication: PAIN IN EXTREMITY
     Dosage: 400 MG (200 MG, 2 IN 1 D)
     Dates: start: 20020715, end: 20020721
  2. CELEBREX [Suspect]
     Indication: SWELLING
     Dosage: 400 MG (200 MG, 2 IN 1 D)
     Dates: start: 20020715, end: 20020721
  3. LORATADINE [Concomitant]

REACTIONS (9)
  - BODY TEMPERATURE INCREASED [None]
  - CHEST DISCOMFORT [None]
  - DIZZINESS [None]
  - DYSPNOEA [None]
  - HERPES SIMPLEX [None]
  - NAUSEA [None]
  - STEVENS-JOHNSON SYNDROME [None]
  - SYNCOPE [None]
  - VOMITING [None]
